FAERS Safety Report 11175848 (Version 1)
Quarter: 2015Q2

REPORT INFORMATION
  Report Type: Spontaneous
  Country: US (occurrence: None)
  Receive Date: 20150608
  Receipt Date: 20150608
  Transmission Date: 20150821
  Serious: Yes (Life-Threatening, Other)
  Sender: FDA-Public Use
  Company Number: None

PATIENT
  Age: 39 Year
  Sex: Female
  Weight: 65.32 kg

DRUGS (7)
  1. TIROSINT [Concomitant]
     Active Substance: LEVOTHYROXINE SODIUM
  2. DEXCOM [Concomitant]
  3. ZINC [Concomitant]
     Active Substance: ZINC\ZINC CHLORIDE
  4. INSULIN [Suspect]
     Active Substance: INSULIN NOS
  5. PROBIOTIC [Concomitant]
     Active Substance: PROBIOTICS NOS
  6. MULTI-VITAMIN [Concomitant]
     Active Substance: .ALPHA.-TOCOPHEROL ACETATE, DL-\ASCORBIC ACID\CYANOCOBALAMIN\FLUORIDE ION\FOLIC ACID\NIACIN\PYRIDOXINE\RIBOFLAVIN\THIAMINE\VITAMIN A\VITAMIN D
  7. CRILL OIL [Concomitant]

REACTIONS (2)
  - Circumstance or information capable of leading to medication error [None]
  - Incorrect dose administered by device [None]

NARRATIVE: CASE EVENT DATE: 20150605
